FAERS Safety Report 4976767-0 (Version None)
Quarter: 2006Q2

REPORT INFORMATION
  Report Type: 
  Country: None (occurrence: None)
  Receive Date: 20060419
  Receipt Date: 20060120
  Transmission Date: 20061013
  Serious: Yes (Other)
  Sender: FDA-Public Use
  Company Number: GB-GLAXOSMITHKLINE-B0407374A

PATIENT
  Age: 47 Year
  Sex: Male
  Weight: 94 kg

DRUGS (2)
  1. ZYBAN [Suspect]
     Route: 048
     Dates: start: 20051129, end: 20060201
  2. NIQUITIN CQ [Concomitant]
     Dosage: 21MG PER DAY
     Route: 062

REACTIONS (11)
  - ASTHENIA [None]
  - ASTHMA [None]
  - DEPRESSION [None]
  - DISTURBANCE IN ATTENTION [None]
  - DRY MOUTH [None]
  - DYSPNOEA [None]
  - FEELING ABNORMAL [None]
  - HYPERHIDROSIS [None]
  - INFLUENZA LIKE ILLNESS [None]
  - MOOD SWINGS [None]
  - POOR QUALITY SLEEP [None]
